FAERS Safety Report 8094141-8 (Version None)
Quarter: 2012Q1

REPORT INFORMATION
  Report Type: 
  Country: None (occurrence: None)
  Receive Date: 20120130
  Receipt Date: 20120130
  Transmission Date: 20120608
  Serious: Yes (Other)
  Sender: FDA-Public Use
  Company Number: None

PATIENT
  Age: 16 Year
  Sex: Female
  Weight: 59.42 kg

DRUGS (2)
  1. RISPERIDONE [Suspect]
     Indication: AFFECTIVE DISORDER
     Dosage: 1.0 MG
     Route: 048
  2. RISPERIDONE [Concomitant]
     Dosage: 2 MG
     Route: 048

REACTIONS (6)
  - PAIN [None]
  - EATING DISORDER [None]
  - BLOOD PROLACTIN INCREASED [None]
  - AFFECTIVE DISORDER [None]
  - ACNE [None]
  - ANXIETY [None]
